FAERS Safety Report 13926826 (Version 7)
Quarter: 2018Q2

REPORT INFORMATION
  Report Type: Spontaneous
  Country: DE (occurrence: DE)
  Receive Date: 20170901
  Receipt Date: 20180412
  Transmission Date: 20180711
  Serious: Yes (Death, Life-Threatening, Hospitalization, Other)
  Sender: FDA-Public Use
  Company Number: DE-AUROBINDO-AUR-APL-2017-39830

PATIENT
  Age: 22 Year
  Sex: Female

DRUGS (11)
  1. QUETIAPINE. [Suspect]
     Active Substance: QUETIAPINE
     Dosage: ()
  2. LORAZEPAM. [Concomitant]
     Active Substance: LORAZEPAM
  3. QUETIAPINE. [Suspect]
     Active Substance: QUETIAPINE
     Dosage: ()
  4. QUETIAPINE. [Suspect]
     Active Substance: QUETIAPINE
     Dosage: ()
  5. QUETIAPINE. [Suspect]
     Active Substance: QUETIAPINE
  6. LORAZEPAM. [Concomitant]
     Active Substance: LORAZEPAM
     Indication: OBSESSIVE THOUGHTS
     Dosage: 2 MG, DAILY
     Route: 065
  7. LORAZEPAM. [Concomitant]
     Active Substance: LORAZEPAM
  8. QUETIAPINE. [Suspect]
     Active Substance: QUETIAPINE
     Indication: SCHIZOPHRENIA
     Dosage: 600 MILLIGRAM
  9. LORAZEPAM. [Concomitant]
     Active Substance: LORAZEPAM
     Indication: SCHIZOPHRENIA
  10. QUETIAPINE. [Suspect]
     Active Substance: QUETIAPINE
  11. QUETIAPINE. [Suspect]
     Active Substance: QUETIAPINE
     Indication: DELUSION
     Dosage: 600 MG, UNK
     Route: 065

REACTIONS (18)
  - Multiple organ dysfunction syndrome [Fatal]
  - Pain [Fatal]
  - Hypoxia [Unknown]
  - Metabolic acidosis [Unknown]
  - Oropharyngeal pain [Fatal]
  - Hypotension [Fatal]
  - Cardiopulmonary failure [Fatal]
  - Circulatory collapse [Unknown]
  - Agranulocytosis [Fatal]
  - Hypotonia [Fatal]
  - Tonsillitis [Unknown]
  - Pharyngitis [Unknown]
  - Body temperature increased [Fatal]
  - Tachypnoea [Fatal]
  - Pharyngeal oedema [Fatal]
  - Sepsis [Fatal]
  - Nasopharyngitis [Fatal]
  - Pneumonia fungal [Fatal]
